FAERS Safety Report 8343183-3 (Version None)
Quarter: 2012Q2

REPORT INFORMATION
  Report Type: 
  Country: None (occurrence: None)
  Receive Date: 20120508
  Receipt Date: 20120430
  Transmission Date: 20120825
  Serious: Yes (Hospitalization)
  Sender: FDA-Public Use
  Company Number: US-BAYER-2011-120524

PATIENT
  Age: 42 Year
  Sex: Female

DRUGS (3)
  1. NITROGLYCERIN [Concomitant]
  2. YASMIN [Suspect]
     Indication: ACNE
     Dosage: UNK
     Dates: start: 20030201
  3. ASPIRIN [Concomitant]

REACTIONS (5)
  - INJURY [None]
  - PULMONARY EMBOLISM [None]
  - ANXIETY [None]
  - EMOTIONAL DISTRESS [None]
  - PAIN [None]
